FAERS Safety Report 17066505 (Version 2)
Quarter: 2019Q4

REPORT INFORMATION
  Report Type: Spontaneous
  Country: GB (occurrence: GB)
  Receive Date: 20191122
  Receipt Date: 20191204
  Transmission Date: 20200122
  Serious: Yes (Death, Other)
  Sender: FDA-Public Use
  Company Number: GB-MYLANLABS-2019M1114158

PATIENT
  Sex: Male

DRUGS (1)
  1. CLOZARIL [Suspect]
     Active Substance: CLOZAPINE
     Indication: SCHIZOPHRENIA
     Dosage: UNK
     Route: 048
     Dates: start: 20190805

REACTIONS (7)
  - Lymphoma [Fatal]
  - Hypotension [Unknown]
  - Pyrexia [Unknown]
  - Acute kidney injury [Unknown]
  - Fall [Unknown]
  - Gait disturbance [Unknown]
  - Sepsis [Unknown]

NARRATIVE: CASE EVENT DATE: 2019
